FAERS Safety Report 8843266 (Version 1)
Quarter: 2012Q4

REPORT INFORMATION
  Report Type: 
  Country: JP (occurrence: JP)
  Receive Date: 20121016
  Receipt Date: 20121016
  Transmission Date: 20130627
  Serious: Yes (Other)
  Sender: FDA-Public Use
  Company Number: PHHY2012JP090595

PATIENT
  Age: 23 Year
  Sex: Female

DRUGS (6)
  1. FTY 720 [Suspect]
     Indication: MULTIPLE SCLEROSIS
     Dosage: 0.5 mg, QD
     Route: 048
     Dates: start: 20120222, end: 20120830
  2. KEPPRA [Concomitant]
     Dosage: 1000 g, UNK
     Route: 048
     Dates: start: 20120828
  3. PREDONINE [Concomitant]
     Dosage: 10 mg, UNK
     Route: 048
  4. PROGRAF [Concomitant]
     Dosage: 3 mg, UNK
     Route: 048
  5. LANDSEN [Concomitant]
     Dosage: 1 g, UNK
     Route: 048
  6. TEGRETOL [Concomitant]
     Dosage: 1 g, UNK
     Route: 048

REACTIONS (14)
  - Convulsion [Recovered/Resolved]
  - Altered state of consciousness [Unknown]
  - Bradycardia [Recovered/Resolved]
  - Dehydration [Recovered/Resolved]
  - Red blood cell count decreased [Unknown]
  - Monocyte percentage increased [Unknown]
  - Albumin globulin ratio increased [Unknown]
  - High density lipoprotein increased [Unknown]
  - Blood creatine phosphokinase decreased [Unknown]
  - Blood cholesterol increased [Unknown]
  - Blood glucose increased [Unknown]
  - White blood cell count decreased [Unknown]
  - Lymphocyte percentage decreased [Unknown]
  - Gamma-glutamyltransferase increased [Unknown]
